FAERS Safety Report 21632941 (Version 2)
Quarter: 2022Q4

REPORT INFORMATION
  Report Type: Spontaneous
  Country: JP (occurrence: JP)
  Receive Date: 20221123
  Receipt Date: 20221209
  Transmission Date: 20230113
  Serious: Yes (Hospitalization, Other)
  Sender: FDA-Public Use
  Company Number: JP-ADVANZ PHARMA-202211008043

PATIENT

DRUGS (6)
  1. ZONISAMIDE [Suspect]
     Active Substance: ZONISAMIDE
     Indication: Parkinson^s disease
     Dosage: 50 MG, QD (TRERIEF)
     Route: 048
  2. NEUPRO [Suspect]
     Active Substance: ROTIGOTINE
     Indication: Parkinson^s disease
     Dosage: UNK
     Route: 062
  3. LEVODOPA [Suspect]
     Active Substance: LEVODOPA
     Indication: Parkinson^s disease
     Dosage: UNK
     Route: 065
  4. LEVODOPA [Suspect]
     Active Substance: LEVODOPA
     Dosage: 500 MG, QD
     Route: 065
  5. LEVODOPA [Suspect]
     Active Substance: LEVODOPA
     Dosage: 700 MG, QD
     Route: 065
  6. LEVODOPA [Suspect]
     Active Substance: LEVODOPA
     Dosage: 1200 MG, QD
     Route: 065

REACTIONS (3)
  - Cotard^s syndrome [Recovered/Resolved]
  - Parkinson^s disease psychosis [Recovered/Resolved]
  - Therapeutic response shortened [Unknown]
